FAERS Safety Report 8974133 (Version 3)
Quarter: 2013Q1

REPORT INFORMATION
  Report Type: Spontaneous
  Country: IT (occurrence: None)
  Receive Date: 20121211
  Receipt Date: 20130104
  Transmission Date: 20140127
  Serious: Yes (Hospitalization, Other)
  Sender: FDA-Public Use
  Company Number: 2012IT0418

PATIENT
  Age: 18 Year
  Sex: Female
  Weight: 60 kg

DRUGS (1)
  1. ORFADIN [Suspect]
     Indication: TYROSINAEMIA
     Dates: start: 19941025

REACTIONS (7)
  - Intra-abdominal haemorrhage [None]
  - Varicose vein ruptured [None]
  - Anaemia [None]
  - Diet noncompliance [None]
  - Liver transplant [None]
  - Hepatic failure [None]
  - Hepatoblastoma [None]
